FAERS Safety Report 8966616 (Version 1)
Quarter: 2012Q4

REPORT INFORMATION
  Report Type: 
  Country: CN (occurrence: CN)
  Receive Date: 20121214
  Receipt Date: 20121214
  Transmission Date: 20130627
  Serious: Yes (Other)
  Sender: FDA-Public Use
  Company Number: PHHY2012CN109455

PATIENT
  Age: 23 Year
  Sex: Male
  Weight: 55 kg

DRUGS (1)
  1. SEBIVO [Suspect]
     Indication: CHRONIC HEPATITIS B
     Dosage: 1 DF, UNK
     Route: 048
     Dates: start: 20070103, end: 20101210

REACTIONS (4)
  - Liver function test abnormal [Recovering/Resolving]
  - Blood creatine phosphokinase increased [Recovering/Resolving]
  - Fatigue [Recovering/Resolving]
  - Jaundice [Recovering/Resolving]
